FAERS Safety Report 6239625-X (Version None)
Quarter: 2009Q2

REPORT INFORMATION
  Report Type: 
  Country: None (occurrence: None)
  Receive Date: 20090622
  Receipt Date: 20090611
  Transmission Date: 20091009
  Serious: Yes (Death)
  Sender: FDA-Public Use
  Company Number: JP-BAXTER-2009BH009003

PATIENT
  Age: 46 Year
  Sex: Male

DRUGS (11)
  1. IFOSFAMIDE [Suspect]
     Indication: TESTICULAR NEOPLASM
     Route: 042
     Dates: start: 20001101, end: 20010401
  2. IFOSFAMIDE [Suspect]
     Route: 042
     Dates: start: 20020207, end: 20020418
  3. LASTET [Suspect]
     Indication: TESTICULAR NEOPLASM
     Route: 042
     Dates: start: 20001101, end: 20010401
  4. LASTET [Suspect]
     Route: 042
     Dates: start: 20020501, end: 20021001
  5. CISPLATIN [Concomitant]
     Indication: TESTICULAR NEOPLASM
     Route: 042
     Dates: start: 20001101, end: 20010401
  6. IRINOTECAN HYDROCHLORIDE [Concomitant]
     Indication: TESTICULAR NEOPLASM
     Route: 042
     Dates: start: 20010601, end: 20011228
  7. DOCETAXEL HYDRATE [Concomitant]
     Indication: TESTIS CANCER
     Route: 065
     Dates: start: 20020207, end: 20020418
  8. METHOTREXATE [Concomitant]
     Indication: TESTICULAR NEOPLASM
     Route: 042
     Dates: start: 20020501, end: 20021001
  9. ACTINOMYCIN D [Concomitant]
     Indication: TESTICULAR NEOPLASM
     Route: 065
     Dates: start: 20020501, end: 20021001
  10. CISPLATIN [Concomitant]
     Route: 042
     Dates: start: 20010601, end: 20011228
  11. CISPLATIN [Concomitant]
     Route: 042
     Dates: start: 20020207, end: 20020418

REACTIONS (1)
  - ACUTE MYELOID LEUKAEMIA [None]
